FAERS Safety Report 17504029 (Version 1)
Quarter: 2020Q1

REPORT INFORMATION
  Report Type: Spontaneous
  Country: US (occurrence: US)
  Receive Date: 20200305
  Receipt Date: 20200305
  Transmission Date: 20200409
  Serious: No
  Sender: FDA-Public Use
  Company Number: US-ROCHE-2360948

PATIENT
  Age: 53 Year
  Sex: Male
  Weight: 83.99 kg

DRUGS (5)
  1. BENADRYL [Concomitant]
     Active Substance: DIPHENHYDRAMINE HYDROCHLORIDE
     Indication: HYPERSENSITIVITY
     Dosage: AS NEEDED FOR ALLERGIES
     Route: 048
  2. ZETIA [Concomitant]
     Active Substance: EZETIMIBE
     Indication: BLOOD CHOLESTEROL INCREASED
     Dosage: ONGOING: YES
     Route: 048
     Dates: start: 2009
  3. XOLAIR [Suspect]
     Active Substance: OMALIZUMAB
     Indication: URTICARIA
     Dosage: RECEIVED 2 SHOTS (1 SHOT IN EACH ARM) EVERY 4 WEEK ;ONGOING: UNKNOWN
     Route: 065
     Dates: start: 2016
  4. XOLAIR [Suspect]
     Active Substance: OMALIZUMAB
     Dosage: ONGOING: UNKNOWN
     Route: 065
     Dates: start: 201902
  5. SINGULAIR [Concomitant]
     Active Substance: MONTELUKAST SODIUM
     Indication: HYPERSENSITIVITY
     Dosage: AS NEEDED FOR ALLERGIES
     Route: 065

REACTIONS (8)
  - Pain [Unknown]
  - Seasonal allergy [Unknown]
  - Product quality issue [Unknown]
  - Urticaria [Recovered/Resolved]
  - Ill-defined disorder [Not Recovered/Not Resolved]
  - Vomiting [Recovered/Resolved]
  - Diarrhoea [Recovered/Resolved]
  - Headache [Unknown]

NARRATIVE: CASE EVENT DATE: 20190714
